FAERS Safety Report 6748492-7 (Version None)
Quarter: 2010Q2

REPORT INFORMATION
  Report Type: 
  Country: None (occurrence: None)
  Receive Date: 20100527
  Receipt Date: 20100527
  Transmission Date: 20101027
  Serious: Yes (Hospitalization)
  Sender: FDA-Public Use
  Company Number: None

PATIENT
  Age: 53 Year
  Sex: Male

DRUGS (1)
  1. MOXIFLOXACIN [Suspect]
     Indication: CELLULITIS
     Dosage: EVERY DAY PO
     Route: 048
     Dates: start: 20090701, end: 20100519

REACTIONS (1)
  - ANAPHYLACTIC REACTION [None]
